FAERS Safety Report 25278108 (Version 1)
Quarter: 2025Q2

REPORT INFORMATION
  Report Type: Spontaneous
  Country: GB (occurrence: GB)
  Receive Date: 20250507
  Receipt Date: 20250507
  Transmission Date: 20250716
  Serious: Yes (Death, Other)
  Sender: TORRENT PHARMA INC.
  Company Number: None

PATIENT
  Age: 20 Year
  Sex: Female

DRUGS (1)
  1. QUETIAPINE [Suspect]
     Active Substance: QUETIAPINE
     Indication: Product used for unknown indication
     Dosage: 50MGS TWICE DAILY
     Route: 065
     Dates: end: 20250403

REACTIONS (8)
  - Neuroleptic malignant syndrome [Fatal]
  - Eating disorder [Unknown]
  - Tremor [Unknown]
  - Dysstasia [Unknown]
  - Gait disturbance [Unknown]
  - Dizziness [Unknown]
  - Vomiting [Unknown]
  - Loss of personal independence in daily activities [Unknown]

NARRATIVE: CASE EVENT DATE: 20240324
